FAERS Safety Report 5874005-8 (Version None)
Quarter: 2008Q3

REPORT INFORMATION
  Report Type: 
  Country: None (occurrence: None)
  Receive Date: 20080908
  Receipt Date: 20080825
  Transmission Date: 20090109
  Serious: Yes (Other)
  Sender: FDA-Public Use
  Company Number: US-ELI_LILLY_AND_COMPANY-US200806003986

PATIENT
  Sex: Female

DRUGS (8)
  1. CYMBALTA [Suspect]
     Indication: BACK PAIN
     Dosage: UNK, UNK
     Dates: start: 20050406, end: 20070301
  2. CYMBALTA [Interacting]
     Dosage: 60 MG, 2/D
     Dates: start: 20070301
  3. LISINOPRIL [Concomitant]
     Dosage: 10 MG, UNK
  4. CELEBREX [Concomitant]
     Dosage: 400 MG, UNK
  5. VITAMIN D [Concomitant]
  6. CALCIUM [Concomitant]
  7. ACTONEL [Concomitant]
  8. FOSAMAX [Concomitant]

REACTIONS (2)
  - BREAST CANCER [None]
  - DRUG INTERACTION [None]
